FAERS Safety Report 7488335-X (Version None)
Quarter: 2011Q2

REPORT INFORMATION
  Report Type: 
  Country: None (occurrence: None)
  Receive Date: 20110518
  Receipt Date: 20110516
  Transmission Date: 20111010
  Serious: Yes (Hospitalization, Other)
  Sender: FDA-Public Use
  Company Number: US-PFIZER INC-2011023014

PATIENT
  Sex: Male

DRUGS (20)
  1. LITHIUM CARBONATE [Concomitant]
     Indication: BIPOLAR DISORDER
  2. METHADONE [Concomitant]
     Indication: PAIN
     Dosage: UNK
     Dates: start: 20050101, end: 20080101
  3. OXYCODONE [Concomitant]
     Indication: PAIN
     Dosage: UNK
     Dates: start: 20060101
  4. PREDNISONE [Concomitant]
     Indication: ARTHRITIS
  5. TRAZODONE [Concomitant]
     Indication: DEPRESSION
     Dosage: UNK
     Dates: start: 20060101, end: 20080101
  6. ADVAIR DISKUS 100/50 [Concomitant]
     Indication: RESPIRATORY DISORDER
     Dosage: UNK
     Dates: start: 20040101, end: 20080101
  7. NICORETTE [Concomitant]
     Indication: SMOKING CESSATION THERAPY
     Dosage: UNK
     Dates: start: 20040101, end: 20100101
  8. SEROQUEL [Concomitant]
     Indication: BIPOLAR DISORDER
  9. AZITHROMYCIN [Concomitant]
     Indication: ANTIBIOTIC THERAPY
     Dosage: UNK
     Dates: start: 20050101, end: 20100101
  10. CHANTIX [Suspect]
     Indication: SMOKING CESSATION THERAPY
     Dosage: STARTER PACK; 1 MG
     Dates: start: 20070418, end: 20100513
  11. BENZONATATE [Concomitant]
     Indication: ANTITUSSIVE THERAPY
     Dosage: UNK
     Dates: start: 20040101, end: 20100101
  12. LYRICA [Concomitant]
     Indication: NEURALGIA
     Dosage: UNK
     Dates: start: 20060101, end: 20080101
  13. TRAZODONE [Concomitant]
     Indication: INSOMNIA
  14. LITHIUM CARBONATE [Concomitant]
     Indication: BIPOLAR I DISORDER
     Dosage: UNK
     Dates: start: 20040101, end: 20080101
  15. PREDNISONE [Concomitant]
     Indication: HYPERSENSITIVITY
     Dosage: UNK
     Dates: start: 20050101, end: 20090101
  16. CYCLOBENZAPRINE [Concomitant]
     Indication: MUSCLE RELAXANT THERAPY
     Dosage: UNK
     Dates: start: 20030101, end: 20090101
  17. SEROQUEL [Concomitant]
     Indication: DEPRESSION
     Dosage: UNK
     Dates: start: 20040101, end: 20080101
  18. DOXYCYCLINE [Concomitant]
     Indication: ANTIBIOTIC THERAPY
     Dosage: UNK
     Dates: start: 20040101, end: 20080101
  19. TRAMADOL HYDROCHLORIDE AND ACETAMINOPHEN [Concomitant]
     Indication: PAIN
     Dosage: UNK
     Dates: start: 20060101, end: 20100101
  20. ALBUTEROL [Concomitant]
     Indication: RESPIRATORY DISORDER
     Dosage: UNK
     Dates: start: 20050101, end: 20080101

REACTIONS (8)
  - SUICIDE ATTEMPT [None]
  - NIGHTMARE [None]
  - DEPRESSION [None]
  - DAYDREAMING [None]
  - PARANOIA [None]
  - POOR QUALITY SLEEP [None]
  - INTENTIONAL OVERDOSE [None]
  - IRRITABILITY [None]
